FAERS Safety Report 7740194-3 (Version None)
Quarter: 2011Q3

REPORT INFORMATION
  Report Type: 
  Country: None (occurrence: None)
  Receive Date: 20110909
  Receipt Date: 20110908
  Transmission Date: 20111222
  Serious: Yes (Life-Threatening)
  Sender: FDA-Public Use
  Company Number: IT-PFIZER INC-2011197324

PATIENT
  Age: 52 Year
  Sex: Male

DRUGS (16)
  1. MEPRAL [Concomitant]
     Dosage: 40 MG, UNK
     Dates: start: 20110731
  2. SOLU-CORTEF [Concomitant]
     Dosage: 100 MG, UNK
     Dates: start: 20110815, end: 20110816
  3. ECALTA [Suspect]
     Indication: SEPSIS
     Dosage: 100 MG, DAILY
     Route: 042
     Dates: start: 20110813, end: 20110817
  4. COLIMICIN [Concomitant]
     Dosage: 4 DF, UNK
     Route: 030
     Dates: start: 20110814, end: 20110822
  5. AT III [Concomitant]
     Dosage: 2000 IU, UNK
  6. FENTANYL CITRATE [Concomitant]
     Dosage: 0.1 MG, UNK
  7. UNASYN [Concomitant]
     Dosage: 9 DF, UNK
     Route: 042
     Dates: start: 20110814, end: 20110822
  8. ACETYLCYSTEINE [Concomitant]
     Dosage: 2 DF, UNK
     Dates: start: 20110801
  9. ESAFOSFINA [Concomitant]
     Dosage: 10 G, UNK
     Dates: start: 20110808
  10. DEURSIL [Concomitant]
     Dosage: 600 MG, UNK
     Dates: start: 20110803
  11. TYGACIL [Suspect]
     Indication: SEPSIS
     Dosage: 100 MG, DAILY
     Route: 042
     Dates: start: 20110814, end: 20110817
  12. DIAZEPAM [Concomitant]
     Dosage: 12 MG, UNK
  13. ALBUMIN HUMAN [Concomitant]
     Dosage: 200 ML, UNK
  14. CERNEVIT-12 [Concomitant]
     Dosage: 1 DF, UNK
     Dates: start: 20110801
  15. HEPARIN SODIUM [Concomitant]
     Dosage: 24000 IU, UNK
     Dates: start: 20110813, end: 20110818
  16. REVATIO [Concomitant]
     Dosage: 80 MG, UNK

REACTIONS (2)
  - HYPOCOAGULABLE STATE [None]
  - ACTIVATED PARTIAL THROMBOPLASTIN TIME PROLONGED [None]
